FAERS Safety Report 19625460 (Version 1)
Quarter: 2021Q3

REPORT INFORMATION
  Report Type: Spontaneous
  Country: US (occurrence: US)
  Receive Date: 20210728
  Receipt Date: 20210728
  Transmission Date: 20211014
  Serious: No
  Sender: FDA-Public Use
  Company Number: US-JNJFOC-20210739323

PATIENT
  Age: 41 Year
  Sex: Female
  Weight: 72.64 kg

DRUGS (6)
  1. TREPROSTINIL. [Concomitant]
     Active Substance: TREPROSTINIL
     Route: 048
  2. TREPROSTINIL. [Concomitant]
     Active Substance: TREPROSTINIL
     Route: 048
  3. OPSUMIT [Concomitant]
     Active Substance: MACITENTAN
  4. TREPROSTINIL. [Concomitant]
     Active Substance: TREPROSTINIL
     Route: 048
  5. ZYRTEC [Suspect]
     Active Substance: CETIRIZINE HYDROCHLORIDE
     Indication: NASAL CONGESTION
     Route: 065
  6. TREPROSTINIL. [Concomitant]
     Active Substance: TREPROSTINIL
     Indication: PULMONARY ARTERIAL HYPERTENSION
     Route: 048
     Dates: start: 20210106

REACTIONS (1)
  - Product use in unapproved indication [Unknown]
